FAERS Safety Report 17545777 (Version 1)
Quarter: 2020Q1

REPORT INFORMATION
  Report Type: Spontaneous
  Country: US (occurrence: US)
  Receive Date: 20200316
  Receipt Date: 20200316
  Transmission Date: 20200409
  Serious: Yes (Other)
  Sender: FDA-Public Use
  Company Number: US-SUNOVION-2020SUN000853

PATIENT
  Age: 50 Year
  Sex: Female

DRUGS (1)
  1. BROVANA [Suspect]
     Active Substance: ARFORMOTEROL TARTRATE
     Dosage: UNK, QD, TAKING HALF A VIAL
     Route: 055

REACTIONS (5)
  - Osteoporosis [Unknown]
  - Vitamin D decreased [Unknown]
  - Inappropriate schedule of product administration [Unknown]
  - Chronic obstructive pulmonary disease [Unknown]
  - Hip fracture [Unknown]
